FAERS Safety Report 17651902 (Version 8)
Quarter: 2020Q3

REPORT INFORMATION
  Report Type: Report from Study
  Country: US (occurrence: US)
  Receive Date: 20200409
  Receipt Date: 20200804
  Transmission Date: 20201102
  Serious: Yes (Other)
  Sender: FDA-Public Use
  Company Number: US-PFIZER INC-2019205668

PATIENT
  Age: 63 Year
  Sex: Female

DRUGS (4)
  1. IBRANCE [Suspect]
     Active Substance: PALBOCICLIB
     Dosage: 125 MG, CYCLIC (DAILY, FOR 21 DAYS AND OFF FOR 7 DAYS)
     Route: 048
     Dates: start: 20200301
  2. IBRANCE [Suspect]
     Active Substance: PALBOCICLIB
     Indication: BREAST CANCER FEMALE
     Dosage: 125 MG CYCLIC (DAILY, FOR 21 DAYS OF 28 DAY CYCLE)
     Route: 048
     Dates: start: 20190424, end: 2019
  3. ZOMETA [Concomitant]
     Active Substance: ZOLEDRONIC ACID
     Dosage: UNK (INFUSION)
  4. IBRANCE [Suspect]
     Active Substance: PALBOCICLIB
     Dosage: 125 MG CYCLIC (DAILY, FOR 21 DAYS, OFF FOR 7 DAYS)
     Route: 048
     Dates: start: 2019

REACTIONS (18)
  - Product dose omission issue [Unknown]
  - Fatigue [Recovering/Resolving]
  - Diarrhoea [Not Recovered/Not Resolved]
  - Dry skin [Not Recovered/Not Resolved]
  - Depression [Unknown]
  - Tachycardia [Unknown]
  - Blood count abnormal [Unknown]
  - Pruritus [Not Recovered/Not Resolved]
  - Neck pain [Unknown]
  - Chest pain [Unknown]
  - White blood cell count decreased [Recovered/Resolved]
  - Red blood cell count decreased [Recovering/Resolving]
  - Arthralgia [Unknown]
  - Back pain [Unknown]
  - Alopecia [Recovered/Resolved]
  - Abdominal pain [Recovering/Resolving]
  - Bone pain [Unknown]
  - Nausea [Unknown]

NARRATIVE: CASE EVENT DATE: 2019
